FAERS Safety Report 5997847-7 (Version None)
Quarter: 2008Q4

REPORT INFORMATION
  Report Type: 
  Country: None (occurrence: None)
  Receive Date: 20081212
  Receipt Date: 20081124
  Transmission Date: 20090506
  Serious: No
  Sender: FDA-Public Use
  Company Number: US-ABBOTT-08P-163-0489601-00

PATIENT
  Sex: Female

DRUGS (10)
  1. HUMIRA [Suspect]
     Indication: RHEUMATOID ARTHRITIS
     Dates: start: 20080801
  2. HUMIRA [Suspect]
     Indication: ANKYLOSING SPONDYLITIS
  3. PENTAMIDINE ISETHIONATE [Concomitant]
     Indication: DRUG USE FOR UNKNOWN INDICATION
  4. DOXYCYCLINE [Concomitant]
     Indication: DRUG USE FOR UNKNOWN INDICATION
  5. ATORVASTATIN CALCIUM [Concomitant]
     Indication: BLOOD CHOLESTEROL
  6. BLOOD PRESSURE PILL [Concomitant]
     Indication: HYPERTENSION
  7. FOLIC ACID [Concomitant]
     Indication: RHEUMATOID ARTHRITIS
  8. ALPRAZOLAM [Concomitant]
     Indication: DRUG USE FOR UNKNOWN INDICATION
  9. METHOTREXATE [Concomitant]
     Indication: RHEUMATOID ARTHRITIS
  10. METHOTREXATE [Concomitant]
     Indication: ANKYLOSING SPONDYLITIS

REACTIONS (5)
  - DEPRESSION [None]
  - DRUG INEFFECTIVE [None]
  - NIGHT SWEATS [None]
  - PAIN [None]
  - WEIGHT INCREASED [None]
